FAERS Safety Report 6134225-4 (Version None)
Quarter: 2009Q1

REPORT INFORMATION
  Report Type: 
  Country: None (occurrence: None)
  Receive Date: 20090325
  Receipt Date: 20090308
  Transmission Date: 20090719
  Serious: Yes (Hospitalization, Other)
  Sender: FDA-Public Use
  Company Number: 2007S1005371

PATIENT
  Age: 43 Year
  Sex: Female
  Weight: 103.5108 kg

DRUGS (9)
  1. PHOSPHOSODA FLAVOR NOT SPECIFIED [Suspect]
     Indication: GASTRIC BANDING
     Dosage: 60 ML;TOTAL;PO
     Route: 048
     Dates: start: 20050815, end: 20050815
  2. MONOPRIL [Concomitant]
  3. COREG [Concomitant]
  4. LIPITOR [Concomitant]
  5. ZETIA [Concomitant]
  6. DEXAMETH [Concomitant]
  7. LASIX [Concomitant]
  8. TYLENOL [Concomitant]
  9. ADVIL [Concomitant]

REACTIONS (2)
  - HEADACHE [None]
  - RENAL FAILURE ACUTE [None]
